FAERS Safety Report 5689701-5 (Version None)
Quarter: 2008Q1

REPORT INFORMATION
  Report Type: 
  Country: None (occurrence: None)
  Receive Date: 20080328
  Receipt Date: 20080315
  Transmission Date: 20080703
  Serious: Yes (Life-Threatening)
  Sender: FDA-Public Use
  Company Number: 2008BI007286

PATIENT
  Age: 32 Year
  Sex: Female

DRUGS (1)
  1. TYSABRI [Suspect]
     Indication: RELAPSING-REMITTING MULTIPLE SCLEROSIS
     Dosage: 300 MG; IV
     Route: 042

REACTIONS (8)
  - BALANCE DISORDER [None]
  - CHROMATURIA [None]
  - DIPLOPIA [None]
  - DYSURIA [None]
  - NAUSEA [None]
  - OVARIAN CYST [None]
  - TUMOUR MARKER INCREASED [None]
  - VOMITING [None]
